FAERS Safety Report 4746899-0 (Version None)
Quarter: 2005Q3

REPORT INFORMATION
  Report Type: 
  Country: None (occurrence: None)
  Receive Date: 20050817
  Receipt Date: 20050811
  Transmission Date: 20060218
  Serious: Yes (Hospitalization)
  Sender: FDA-Public Use
  Company Number: FR-ROCHE-413762

PATIENT
  Age: 56 Year
  Sex: Male

DRUGS (10)
  1. ROCEPHIN [Suspect]
     Route: 042
     Dates: start: 20050701, end: 20050713
  2. FLAGYL [Suspect]
     Indication: BACTERIAL CULTURE POSITIVE
     Route: 042
     Dates: start: 20050705, end: 20050713
  3. HYDROCORTISONE HEMISUCCINATE [Concomitant]
  4. MORPHINE [Concomitant]
  5. TRANXENE [Concomitant]
  6. NEXIUM [Concomitant]
  7. CORDARONE [Concomitant]
  8. LOVENOX [Concomitant]
  9. LASIX [Concomitant]
  10. INSULIN [Concomitant]

REACTIONS (1)
  - CHOLESTASIS [None]
